FAERS Safety Report 13437664 (Version 1)
Quarter: 2017Q2

REPORT INFORMATION
  Report Type: Spontaneous
  Country: US (occurrence: US)
  Receive Date: 20170412
  Receipt Date: 20170412
  Transmission Date: 20170830
  Serious: No
  Sender: FDA-Public Use
  Company Number: US-SA-2016SA230433

PATIENT
  Age: 55 Year
  Sex: Male

DRUGS (2)
  1. ALLEGRA ALLERGY [Suspect]
     Active Substance: FEXOFENADINE HYDROCHLORIDE
     Indication: HYPERSENSITIVITY
     Dosage: START DATE-SEVERAL YEARS
     Route: 048
  2. ALLEGRA ALLERGY [Suspect]
     Active Substance: FEXOFENADINE HYDROCHLORIDE
     Indication: SINUS DISORDER
     Dosage: START DATE-SEVERAL YEARS
     Route: 048

REACTIONS (4)
  - Dyspepsia [Unknown]
  - Hiccups [Unknown]
  - Diarrhoea [Unknown]
  - Extra dose administered [Unknown]

NARRATIVE: CASE EVENT DATE: 20161214
